FAERS Safety Report 6827735-5 (Version None)
Quarter: 2010Q3

REPORT INFORMATION
  Report Type: 
  Country: None (occurrence: None)
  Receive Date: 20100709
  Receipt Date: 20070126
  Transmission Date: 20110219
  Serious: No
  Sender: FDA-Public Use
  Company Number: US-PFIZER INC-2007008382

PATIENT
  Sex: Male
  Weight: 82.55 kg

DRUGS (5)
  1. CHANTIX [Suspect]
     Indication: SMOKING CESSATION THERAPY
  2. LOTREL [Concomitant]
     Indication: HYPERTENSION
  3. ACETYLSALICYLIC ACID [Concomitant]
  4. FOLIC ACID [Concomitant]
  5. DRUG, UNSPECIFIED [Concomitant]

REACTIONS (1)
  - WEIGHT INCREASED [None]
